FAERS Safety Report 9958540 (Version 1)
Quarter: 2014Q1

REPORT INFORMATION
  Report Type: Spontaneous
  Country: KR (occurrence: KR)
  Receive Date: 20140305
  Receipt Date: 20140305
  Transmission Date: 20141002
  Serious: Yes (Hospitalization, Other)
  Sender: FDA-Public Use
  Company Number: 2014SP001085

PATIENT
  Age: 40 Year
  Sex: Female

DRUGS (3)
  1. PACLITAXEL [Suspect]
     Indication: THYMOMA
     Route: 042
     Dates: start: 20120418
  2. IFOSFAMIDE [Suspect]
     Indication: THYMOMA
     Route: 042
     Dates: start: 20120418
  3. MESNA [Suspect]
     Indication: THYMOMA
     Route: 042
     Dates: start: 20120418

REACTIONS (12)
  - Tumour lysis syndrome [Recovered/Resolved]
  - Renal failure acute [Recovered/Resolved]
  - Azotaemia [Recovered/Resolved]
  - Oliguria [Recovered/Resolved]
  - Metabolic acidosis [Recovered/Resolved]
  - Hyperuricaemia [Recovered/Resolved]
  - Hyperkalaemia [Recovered/Resolved]
  - Hyperphosphataemia [Recovered/Resolved]
  - Hypocalcaemia [Recovered/Resolved]
  - Tachycardia [Recovered/Resolved]
  - Tachypnoea [Recovered/Resolved]
  - Dyspnoea [Recovered/Resolved]
